FAERS Safety Report 4425385-1 (Version None)
Quarter: 2004Q3

REPORT INFORMATION
  Report Type: 
  Country: None (occurrence: None)
  Receive Date: 20040813
  Receipt Date: 20040506
  Transmission Date: 20050211
  Serious: Yes (Hospitalization)
  Sender: FDA-Public Use
  Company Number: GB-GLAXOSMITHKLINE-B0332061A

PATIENT
  Age: 76 Year
  Sex: Female
  Weight: 83.6 kg

DRUGS (8)
  1. TAGAMET [Suspect]
     Dosage: 400MG TWICE PER DAY
     Route: 048
     Dates: start: 20020701, end: 20040401
  2. STEROIDS [Concomitant]
     Route: 065
  3. QUININE SULPHATE [Concomitant]
     Dosage: 200MG AT NIGHT
     Route: 048
     Dates: start: 20020101
  4. FRUSEMIDE [Concomitant]
     Dosage: 20MG IN THE MORNING
     Route: 048
     Dates: start: 20020101
  5. INDOMETHACIN 25MG CAP [Concomitant]
     Dosage: 25MG THREE TIMES PER DAY
     Route: 048
     Dates: start: 19990101
  6. LERCANIDIPINE [Concomitant]
     Dosage: 10MG PER DAY
     Route: 048
     Dates: start: 20030101
  7. TEMAZEPAM [Concomitant]
  8. ASPIRIN [Concomitant]
     Dosage: 75MG PER DAY
     Route: 048

REACTIONS (3)
  - DIZZINESS [None]
  - HEART RATE DECREASED [None]
  - SINOATRIAL BLOCK [None]
